FAERS Safety Report 5662607-3 (Version None)
Quarter: 2008Q1

REPORT INFORMATION
  Report Type: 
  Country: None (occurrence: None)
  Receive Date: 20080313
  Receipt Date: 20080311
  Transmission Date: 20080703
  Serious: Yes (Life-Threatening, Hospitalization, Disabling, Other)
  Sender: FDA-Public Use
  Company Number: US-BRISTOL-MYERS SQUIBB COMPANY-14106512

PATIENT
  Age: 85 Year
  Sex: Female
  Weight: 89 kg

DRUGS (2)
  1. TAXOL [Suspect]
     Indication: BREAST CANCER
     Dosage: CUMULATIVE DOSE OF 1881 MG. DISCONTINUED STUDY FOM STUDY ON 14-JAN-2008.
     Route: 042
     Dates: start: 20071003, end: 20071226
  2. AVASTIN [Suspect]
     Indication: BREAST CANCER
     Dosage: CUMULATIVE DOSE OF 3720 MG.  EVERY OTHER MONTH, TWICE A MONTH. DISCONTINUED ON 14-JAN-2008.
     Route: 042
     Dates: start: 20071003, end: 20071226

REACTIONS (3)
  - DYSPNOEA [None]
  - HYPOCALCAEMIA [None]
  - HYPOPHOSPHATAEMIA [None]
